FAERS Safety Report 19485176 (Version 1)
Quarter: 2021Q3

REPORT INFORMATION
  Report Type: Spontaneous
  Country: US (occurrence: US)
  Receive Date: 20210702
  Receipt Date: 20210702
  Transmission Date: 20211014
  Serious: Yes (Hospitalization, Other)
  Sender: FDA-Public Use
  Company Number: US-SPECGX-T202101571

PATIENT
  Age: 34 Year
  Sex: Female

DRUGS (2)
  1. FENTANYL CITRATE. [Suspect]
     Active Substance: FENTANYL CITRATE
     Indication: PRODUCT USED FOR UNKNOWN INDICATION
     Dosage: UNK (VIA SKIN POPPING)
     Route: 065
  2. METHADONE [Suspect]
     Active Substance: METHADONE HYDROCHLORIDE
     Indication: PRODUCT USED FOR UNKNOWN INDICATION
     Dosage: UNK (VIA SKIN POPPING)
     Route: 065

REACTIONS (4)
  - Endocarditis [Recovering/Resolving]
  - Incorrect route of product administration [Unknown]
  - Septic embolus [Recovering/Resolving]
  - Deep vein thrombosis [Recovering/Resolving]
